FAERS Safety Report 6697140-3 (Version None)
Quarter: 2010Q2

REPORT INFORMATION
  Report Type: 
  Country: None (occurrence: None)
  Receive Date: 20100426
  Receipt Date: 20100416
  Transmission Date: 20101027
  Serious: Yes (Death)
  Sender: FDA-Public Use
  Company Number: ZA-PFIZER INC-2008080031

PATIENT
  Age: 50 Year
  Sex: Male
  Weight: 48 kg

DRUGS (8)
  1. IRINOTECAN HYDROCHLORIDE [Suspect]
     Indication: COLORECTAL CANCER
     Dosage: 656 MG, 2 WEEKLY
     Route: 042
     Dates: start: 20080514, end: 20080902
  2. SUNITINIB MALATE [Suspect]
     Indication: COLORECTAL CANCER
     Dosage: 37.5 MG, 1X/DAY
     Route: 048
     Dates: start: 20080514, end: 20080830
  3. FLUOROURACIL [Suspect]
     Indication: COLORECTAL CANCER
     Dosage: 656 MG, 2 WEEKLY
     Route: 040
     Dates: start: 20080514, end: 20080902
  4. FLUOROURACIL [Suspect]
     Dosage: 3936 MG, 2 WEEKLY
     Route: 041
     Dates: start: 20080514, end: 20080904
  5. CALCIUM FOLINATE [Suspect]
     Indication: COLORECTAL CANCER
     Dosage: 328 MG, 2 WEEKLY
     Route: 042
     Dates: start: 20080514, end: 20080902
  6. LOPERAMIDE [Concomitant]
     Indication: DIARRHOEA
     Dates: start: 20080916
  7. CIPROFLOXACIN [Concomitant]
     Indication: ANTIBIOTIC THERAPY
     Dates: start: 20080916
  8. SLOW-K [Concomitant]
     Indication: BLOOD POTASSIUM DECREASED
     Dosage: 2 TABLETS
     Route: 048
     Dates: start: 20080916

REACTIONS (1)
  - RESPIRATORY FAILURE [None]
